FAERS Safety Report 13483740 (Version 3)
Quarter: 2017Q3

REPORT INFORMATION
  Report Type: Spontaneous
  Country: US (occurrence: US)
  Receive Date: 20170424
  Receipt Date: 20170717
  Transmission Date: 20171127
  Serious: Yes (Death, Other)
  Sender: FDA-Public Use
  Company Number: US-009507513-1704USA007768

PATIENT
  Age: 69 Year
  Sex: Female

DRUGS (19)
  1. SOTALOL. [Concomitant]
     Active Substance: SOTALOL
  2. XEROFORM [Concomitant]
  3. ALLOPURINOL. [Concomitant]
     Active Substance: ALLOPURINOL
  4. PRADAXA [Concomitant]
     Active Substance: DABIGATRAN ETEXILATE MESYLATE
  5. MUPIROCIN. [Concomitant]
     Active Substance: MUPIROCIN
  6. SSD AND SSD AF CREAM [Concomitant]
  7. PETROLATUM. [Concomitant]
     Active Substance: PETROLATUM
  8. BEXAROTENE. [Concomitant]
     Active Substance: BEXAROTENE
  9. OMEGA-3 MARINE TRIGLYCERIDES [Concomitant]
     Active Substance: FISH OIL
  10. PANTOPRAZOLE [Concomitant]
     Active Substance: PANTOPRAZOLE
  11. VITAMINS (UNSPECIFIED) [Concomitant]
     Active Substance: VITAMINS
  12. INTRON A [Suspect]
     Active Substance: INTERFERON ALFA-2B
     Indication: MYCOSIS FUNGOIDES
     Dosage: STRENGTH:18 MILLION IU; DOSE: 3 MILLION IU, TIW
     Route: 058
     Dates: start: 20160819, end: 20170318
  13. TAC [Concomitant]
     Active Substance: TRIAMCINOLONE ACETONIDE
  14. PAROXETINE. [Concomitant]
     Active Substance: PAROXETINE
  15. PYRIDOXINE [Concomitant]
     Active Substance: PYRIDOXINE
  16. LOSARTAN POTASSIUM TABLETS [Concomitant]
     Active Substance: LOSARTAN POTASSIUM
  17. LEVOTHYROXINE SODIUM. [Concomitant]
     Active Substance: LEVOTHYROXINE SODIUM
  18. ESTRACE [Concomitant]
     Active Substance: ESTRADIOL
  19. ATORVASTATIN [Concomitant]
     Active Substance: ATORVASTATIN

REACTIONS (2)
  - Product use in unapproved indication [Unknown]
  - Death [Fatal]

NARRATIVE: CASE EVENT DATE: 20160819
